FAERS Safety Report 17010028 (Version 1)
Quarter: 2019Q4

REPORT INFORMATION
  Report Type: Spontaneous
  Country: HR (occurrence: HR)
  Receive Date: 20191108
  Receipt Date: 20191108
  Transmission Date: 20200122
  Serious: Yes (Other)
  Sender: FDA-Public Use
  Company Number: HR-PFIZER INC-2019477679

PATIENT
  Sex: Female

DRUGS (2)
  1. PHOSPHORIC ACID [Suspect]
     Active Substance: PHOSPHORIC ACID
     Dosage: UNK
     Route: 048
     Dates: start: 201908, end: 201908
  2. XANAX [Suspect]
     Active Substance: ALPRAZOLAM
     Dosage: UNK
     Route: 048
     Dates: start: 201908, end: 201908

REACTIONS (4)
  - Suicide attempt [Unknown]
  - Intentional overdose [Unknown]
  - Oropharyngeal pain [Unknown]
  - Poisoning [Unknown]

NARRATIVE: CASE EVENT DATE: 201908
